FAERS Safety Report 4695807-X (Version None)
Quarter: 2005Q2

REPORT INFORMATION
  Report Type: 
  Country: None (occurrence: None)
  Receive Date: 20050608
  Receipt Date: 20050223
  Transmission Date: 20051028
  Serious: Yes (Other)
  Sender: FDA-Public Use
  Company Number: 396605

PATIENT

DRUGS (3)
  1. ACCUTANE [Suspect]
     Indication: ACNE
  2. AMNESTEEM [Suspect]
     Indication: ACNE
     Dates: start: 20040211, end: 20040715
  3. ORAL CONTRACEPTIVE PILL (ORAL CONTRACEPTION NOS) [Concomitant]

REACTIONS (1)
  - ABORTION INDUCED [None]
